FAERS Safety Report 6280332-5 (Version None)
Quarter: 2009Q3

REPORT INFORMATION
  Report Type: 
  Country: None (occurrence: None)
  Receive Date: 20090724
  Receipt Date: 20090721
  Transmission Date: 20100115
  Serious: Yes (Death, Hospitalization)
  Sender: FDA-Public Use
  Company Number: US-BIOGENIDEC-2009BI020719

PATIENT
  Age: 55 Year
  Sex: Male

DRUGS (6)
  1. TYSABRI [Suspect]
     Indication: MULTIPLE SCLEROSIS
     Route: 042
     Dates: start: 20090507, end: 20090604
  2. HYDROCODONE [Concomitant]
     Indication: BACK PAIN
  3. PROVIGIL [Concomitant]
     Indication: FATIGUE
  4. CLONAZEPAM [Concomitant]
     Indication: ANXIETY
  5. LORAZEPAM [Concomitant]
     Indication: SLEEP DISORDER
  6. TRILEPTAL [Concomitant]
     Indication: TRIGEMINAL NEURALGIA

REACTIONS (1)
  - COMPLETED SUICIDE [None]
